FAERS Safety Report 4784023-9 (Version None)
Quarter: 2005Q3

REPORT INFORMATION
  Report Type: 
  Country: None (occurrence: None)
  Receive Date: 20050927
  Receipt Date: 20050622
  Transmission Date: 20060218
  Serious: Yes (Other)
  Sender: FDA-Public Use
  Company Number: USA050290883

PATIENT
  Age: 48 Year
  Sex: Male

DRUGS (4)
  1. STRATTERA [Suspect]
     Indication: ATTENTION DEFICIT/HYPERACTIVITY DISORDER
     Dosage: 25 MG DAY
     Dates: start: 20050210
  2. XANAX(ALPRAZOLAM DUM) [Concomitant]
  3. CIPRO [Concomitant]
  4. CARDURA(DOXAZOSIN /00639301/) [Concomitant]

REACTIONS (5)
  - ANXIETY [None]
  - CHEST DISCOMFORT [None]
  - FEELING JITTERY [None]
  - HEART RATE INCREASED [None]
  - PALPITATIONS [None]
